FAERS Safety Report 6756642-1 (Version None)
Quarter: 2010Q2

REPORT INFORMATION
  Report Type: 
  Country: None (occurrence: None)
  Receive Date: 20100604
  Receipt Date: 20100601
  Transmission Date: 20101027
  Serious: Yes (Life-Threatening, Hospitalization)
  Sender: FDA-Public Use
  Company Number: AU-MERCK-1006USA00053

PATIENT
  Age: 85 Year
  Sex: Female

DRUGS (6)
  1. MODURETIC 5-50 [Suspect]
     Indication: PROPHYLAXIS
     Route: 048
     Dates: end: 20100519
  2. CORDARONE [Suspect]
     Route: 048
     Dates: start: 20090519, end: 20090519
  3. ASPIRIN [Concomitant]
     Route: 048
     Dates: end: 20100520
  4. ATACAND HCT [Suspect]
     Indication: ESSENTIAL HYPERTENSION
     Route: 048
     Dates: end: 20100519
  5. ZANIDIP [Suspect]
     Indication: ESSENTIAL HYPERTENSION
     Route: 048
     Dates: end: 20090526
  6. PARIET [Suspect]
     Indication: OESOPHAGEAL DISORDER
     Route: 048
     Dates: end: 20100522

REACTIONS (4)
  - HYPOTHYROIDISM [None]
  - INAPPROPRIATE ANTIDIURETIC HORMONE SECRETION [None]
  - INTERSTITIAL LUNG DISEASE [None]
  - LIVER INJURY [None]
